FAERS Safety Report 13792567 (Version 3)
Quarter: 2017Q4

REPORT INFORMATION
  Report Type: Spontaneous
  Country: US (occurrence: US)
  Receive Date: 20170726
  Receipt Date: 20171019
  Transmission Date: 20180320
  Serious: Yes (Other)
  Sender: FDA-Public Use
  Company Number: US-BAYER-2017-142715

PATIENT
  Age: 22 Year
  Sex: Female
  Weight: 98.87 kg

DRUGS (2)
  1. MIRENA [Suspect]
     Active Substance: LEVONORGESTREL
     Indication: CONTRACEPTION
     Dosage: 20 MCG/24HR, CONT
     Route: 015
     Dates: start: 20160205, end: 20160913
  2. WELLBUTRIN XL [Concomitant]
     Active Substance: BUPROPION HYDROCHLORIDE
     Dosage: WELLBUTRIN XL 150 MG ORAL TABLET EXTENDED RELEASE 24 HR
     Route: 048

REACTIONS (9)
  - Device related infection [None]
  - Nausea [None]
  - Dysmenorrhoea [None]
  - Gynaecological chlamydia infection [Recovered/Resolved]
  - Cervix haemorrhage uterine [None]
  - Amenorrhoea [Not Recovered/Not Resolved]
  - Vomiting [None]
  - Pelvic pain [None]
  - Dizziness [None]

NARRATIVE: CASE EVENT DATE: 201605
